FAERS Safety Report 8795939 (Version 5)
Quarter: 2013Q2

REPORT INFORMATION
  Report Type: Report from Study
  Country: US (occurrence: US)
  Receive Date: 20120920
  Receipt Date: 20130507
  Transmission Date: 20140414
  Serious: Yes (Congenital Anomaly)
  Sender: FDA-Public Use
  Company Number: US-PFIZER INC-2012228363

PATIENT
  Sex: Female
  Weight: 2.73 kg

DRUGS (3)
  1. VIRACEPT [Suspect]
     Indication: HIV INFECTION
     Dosage: 2500 MG/DAILY
     Route: 064
     Dates: start: 20120109
  2. COMBIVIR [Suspect]
     Indication: HIV INFECTION
     Dosage: 2 TAB/CAPS DAILY
     Route: 064
     Dates: start: 20120109, end: 20120912
  3. KALETRA [Suspect]
     Indication: HIV INFECTION
     Dosage: 4 TAB/CAPS DAILY
     Route: 064
     Dates: start: 20120109, end: 20120912

REACTIONS (2)
  - Maternal exposure timing unspecified [Unknown]
  - Nasal operation [Unknown]
